FAERS Safety Report 18649809 (Version 1)
Quarter: 2020Q4

REPORT INFORMATION
  Report Type: Spontaneous
  Country: US (occurrence: US)
  Receive Date: 20201222
  Receipt Date: 20201222
  Transmission Date: 20210114
  Serious: Yes (Other)
  Sender: FDA-Public Use
  Company Number: US-MYLANLABS-2020M1103372

PATIENT
  Sex: Female

DRUGS (1)
  1. ACETAMINOPHEN. [Suspect]
     Active Substance: ACETAMINOPHEN
     Indication: PRODUCT USED FOR UNKNOWN INDICATION
     Dosage: UNK

REACTIONS (9)
  - Lethargy [Unknown]
  - Dizziness [Unknown]
  - Dry mouth [Unknown]
  - Dental caries [Unknown]
  - Anxiety [Unknown]
  - Drug dependence [Unknown]
  - Vision blurred [Unknown]
  - Weight increased [Unknown]
  - Constipation [Unknown]
